FAERS Safety Report 4675873-8 (Version None)
Quarter: 2005Q2

REPORT INFORMATION
  Report Type: 
  Country: None (occurrence: None)
  Receive Date: 20050525
  Receipt Date: 20050512
  Transmission Date: 20051028
  Serious: Yes (Hospitalization)
  Sender: FDA-Public Use
  Company Number: 2005074316

PATIENT
  Age: 64 Year
  Sex: Male
  Weight: 77 kg

DRUGS (3)
  1. TRANEXAMIC ACID (TRANEXAMIC ACID) [Suspect]
     Indication: HAEMORRHAGE
     Dosage: 1540 MG (1 IN 1 D), INTRAVENOUS
     Route: 042
     Dates: start: 20041018, end: 20041018
  2. DICLOXACILLIN SODIUM MONOHYDRATE [Concomitant]
  3. GENTAMICIN [Concomitant]

REACTIONS (1)
  - CEREBROVASCULAR ACCIDENT [None]
